FAERS Safety Report 12636966 (Version 2)
Quarter: 2016Q3

REPORT INFORMATION
  Report Type: Spontaneous
  Country: US (occurrence: US)
  Receive Date: 20160809
  Receipt Date: 20160901
  Transmission Date: 20161109
  Serious: Yes (Hospitalization)
  Sender: FDA-Public Use
  Company Number: US-RELYPSA-RLY2016001702

PATIENT
  Age: 81 Year
  Sex: Male

DRUGS (17)
  1. FAMOTIDINE. [Concomitant]
     Active Substance: FAMOTIDINE
  2. RENVELA [Concomitant]
     Active Substance: SEVELAMER CARBONATE
  3. ATORVASTATIN CALCIUM. [Concomitant]
     Active Substance: ATORVASTATIN CALCIUM
  4. NEPRO                              /07459601/ [Concomitant]
  5. VELTASSA [Suspect]
     Active Substance: PATIROMER
     Indication: HYPERKALAEMIA
     Dosage: 8.4 G, QD
     Route: 048
  6. FINASTERIDE. [Concomitant]
     Active Substance: FINASTERIDE
  7. HEPARIN SODIUM. [Concomitant]
     Active Substance: HEPARIN SODIUM
  8. HYDROMORPHONE HCL [Concomitant]
     Active Substance: HYDROMORPHONE HYDROCHLORIDE
  9. METOPROLOL TARTRATE. [Concomitant]
     Active Substance: METOPROLOL TARTRATE
  10. ISOSORBIDE DINITRATE. [Concomitant]
     Active Substance: ISOSORBIDE DINITRATE
  11. MULTIVITAMINS [Concomitant]
     Active Substance: VITAMINS
  12. TAMSULOSIN HCL [Concomitant]
     Active Substance: TAMSULOSIN
  13. PLAVIX [Concomitant]
     Active Substance: CLOPIDOGREL BISULFATE
  14. ASPIRIN                            /00002701/ [Concomitant]
     Active Substance: ASPIRIN
  15. COLACE [Concomitant]
     Active Substance: DOCUSATE SODIUM
  16. HUMALOG [Concomitant]
     Active Substance: INSULIN LISPRO
  17. LANTUS [Concomitant]
     Active Substance: INSULIN GLARGINE

REACTIONS (1)
  - Hypertension [Unknown]

NARRATIVE: CASE EVENT DATE: 20160726
